FAERS Safety Report 14500255 (Version 1)
Quarter: 2018Q1

REPORT INFORMATION
  Report Type: Spontaneous
  Country: CA (occurrence: CA)
  Receive Date: 20180207
  Receipt Date: 20180207
  Transmission Date: 20180509
  Serious: Yes (Death, Hospitalization, Disabling, Other)
  Sender: FDA-Public Use
  Company Number: CA-BAUSCH-BL-2018-002871

PATIENT
  Age: 62 Year
  Sex: Male
  Weight: 92 kg

DRUGS (21)
  1. DOXYCYCLINE HYCLATE. [Suspect]
     Active Substance: DOXYCYCLINE HYCLATE
     Indication: OSTEOMYELITIS
  2. VANCOMYCIN [Suspect]
     Active Substance: VANCOMYCIN
     Indication: INTERVERTEBRAL DISCITIS
  3. TIGECYCLINE. [Suspect]
     Active Substance: TIGECYCLINE
     Indication: INTERVERTEBRAL DISCITIS
  4. RIFAMPIN. [Suspect]
     Active Substance: RIFAMPIN
     Indication: OSTEOMYELITIS
  5. DOXYCYCLINE HYCLATE. [Suspect]
     Active Substance: DOXYCYCLINE HYCLATE
     Indication: INTERVERTEBRAL DISCITIS
  6. APO-LINEZOLID [Suspect]
     Active Substance: LINEZOLID
     Indication: PARASPINAL ABSCESS
     Route: 065
  7. APO-LINEZOLID [Suspect]
     Active Substance: LINEZOLID
     Indication: INTERVERTEBRAL DISCITIS
  8. TIGECYCLINE. [Suspect]
     Active Substance: TIGECYCLINE
     Indication: PARASPINAL ABSCESS
     Route: 042
  9. VANCOMYCIN [Suspect]
     Active Substance: VANCOMYCIN
     Indication: OSTEOMYELITIS
  10. CEFTAROLINE FOSAMIL ACETATE [Suspect]
     Active Substance: CEFTAROLINE FOSAMIL
     Indication: INTERVERTEBRAL DISCITIS
  11. CUBICIN [Suspect]
     Active Substance: DAPTOMYCIN
     Indication: INTERVERTEBRAL DISCITIS
     Route: 065
  12. TIGECYCLINE. [Suspect]
     Active Substance: TIGECYCLINE
     Indication: OSTEOMYELITIS
     Route: 042
  13. RIFAMPIN. [Suspect]
     Active Substance: RIFAMPIN
     Indication: INTERVERTEBRAL DISCITIS
  14. APO-LINEZOLID [Suspect]
     Active Substance: LINEZOLID
     Indication: OSTEOMYELITIS
     Route: 048
  15. CUBICIN [Suspect]
     Active Substance: DAPTOMYCIN
     Indication: PARASPINAL ABSCESS
     Dosage: POWDER FOR SOLUTION INTRAVENOUS
     Route: 042
  16. CUBICIN [Suspect]
     Active Substance: DAPTOMYCIN
     Indication: OSTEOMYELITIS
     Route: 042
  17. CEFTAROLINE FOSAMIL ACETATE [Suspect]
     Active Substance: CEFTAROLINE FOSAMIL
     Indication: PARASPINAL ABSCESS
     Route: 042
  18. CEFTAROLINE FOSAMIL ACETATE [Suspect]
     Active Substance: CEFTAROLINE FOSAMIL
     Indication: OSTEOMYELITIS
  19. VANCOMYCIN [Suspect]
     Active Substance: VANCOMYCIN
     Indication: PARASPINAL ABSCESS
     Dosage: DOSAGE FORM: NOT SPECIFIED
     Route: 065
  20. RIFAMPIN. [Suspect]
     Active Substance: RIFAMPIN
     Indication: PARASPINAL ABSCESS
     Dosage: DOSAGE FORM: NOT SPECIFIED
     Route: 048
  21. DOXYCYCLINE HYCLATE. [Suspect]
     Active Substance: DOXYCYCLINE HYCLATE
     Indication: PARASPINAL ABSCESS
     Route: 048

REACTIONS (6)
  - Staphylococcal infection [Fatal]
  - Treatment failure [Fatal]
  - General physical health deterioration [Fatal]
  - Transaminases increased [Fatal]
  - Thrombocytopenia [Fatal]
  - Hypophagia [Fatal]
